FAERS Safety Report 24978415 (Version 1)
Quarter: 2025Q1

REPORT INFORMATION
  Report Type: Report from Study
  Country: US (occurrence: US)
  Receive Date: 20250217
  Receipt Date: 20250217
  Transmission Date: 20250408
  Serious: Yes (Other)
  Sender: ABBVIE
  Company Number: US-ABBVIE-6133876

PATIENT
  Sex: Female

DRUGS (1)
  1. RINVOQ [Suspect]
     Active Substance: UPADACITINIB
     Indication: Product used for unknown indication
     Route: 048

REACTIONS (6)
  - Knee arthroplasty [Unknown]
  - Fall [Unknown]
  - Diabetes mellitus [Unknown]
  - Intraocular pressure increased [Unknown]
  - Visual impairment [Unknown]
  - Device breakage [Unknown]
